FAERS Safety Report 9154776 (Version 1)
Quarter: 2013Q1

REPORT INFORMATION
  Report Type: Spontaneous
  Country: US (occurrence: None)
  Receive Date: 20130212
  Receipt Date: 20130212
  Transmission Date: 20140127
  Serious: Yes (Other)
  Sender: FDA-Public Use
  Company Number: 2012PL000073

PATIENT
  Age: 32 Year
  Sex: Female

DRUGS (1)
  1. PROLEUKIN [Suspect]
     Indication: MALIGNANT MELANOMA
     Dosage: 11.7 MIU;UNK;IV
     Route: 042
     Dates: start: 20110623, end: 20110625

REACTIONS (9)
  - Anaemia [None]
  - Fatigue [None]
  - Dizziness [None]
  - Thrombotic microangiopathy [None]
  - Blood creatinine increased [None]
  - Blood urea increased [None]
  - Blood erythropoietin decreased [None]
  - Bone marrow failure [None]
  - Myelodysplastic syndrome [None]
